FAERS Safety Report 6335435-3 (Version None)
Quarter: 2009Q3

REPORT INFORMATION
  Report Type: 
  Country: None (occurrence: None)
  Receive Date: 20090831
  Receipt Date: 20090820
  Transmission Date: 20100115
  Serious: Yes (Hospitalization)
  Sender: FDA-Public Use
  Company Number: BR-ASTRAZENECA-2009SE09302

PATIENT
  Age: 84 Year
  Sex: Female

DRUGS (4)
  1. SEROQUEL [Suspect]
     Route: 048
  2. SEROQUEL [Suspect]
     Route: 048
  3. RIVOTRIL [Concomitant]
     Indication: RESTLESSNESS
     Dosage: PRN
     Route: 048
  4. RIVOTRIL [Concomitant]
     Indication: INSOMNIA
     Dosage: PRN
     Route: 048

REACTIONS (11)
  - AGGRESSION [None]
  - ANAEMIA [None]
  - BLOOD ALBUMIN ABNORMAL [None]
  - BLOOD CALCIUM DECREASED [None]
  - BLOOD POTASSIUM ABNORMAL [None]
  - BLOOD SODIUM ABNORMAL [None]
  - FAECALOMA [None]
  - FALL [None]
  - PNEUMONIA [None]
  - SUBDURAL HAEMATOMA [None]
  - URINARY TRACT INFECTION [None]
